FAERS Safety Report 4575396-0 (Version None)
Quarter: 2005Q1

REPORT INFORMATION
  Report Type: 
  Country: None (occurrence: None)
  Receive Date: 20050131
  Receipt Date: 20050131
  Transmission Date: 20050727
  Serious: No
  Sender: FDA-Public Use
  Company Number: None

PATIENT
  Age: 44 Year
  Sex: Male
  Weight: 86.1834 kg

DRUGS (1)
  1. FLOUXETINE 20 MG ALPHAPHARM [Suspect]
     Indication: DEPRESSION
     Dosage: ONE DAY ORAL
     Route: 048
     Dates: start: 20020101, end: 20041127

REACTIONS (2)
  - DRUG EFFECT DECREASED [None]
  - PHARMACEUTICAL PRODUCT COMPLAINT [None]
